FAERS Safety Report 7024703-8 (Version None)
Quarter: 2010Q4

REPORT INFORMATION
  Report Type: 
  Country: None (occurrence: None)
  Receive Date: 20101001
  Receipt Date: 20100920
  Transmission Date: 20110411
  Serious: Yes (Other)
  Sender: FDA-Public Use
  Company Number: US-PFIZER INC-2010119677

PATIENT
  Sex: Male
  Weight: 113.38 kg

DRUGS (8)
  1. LYRICA [Suspect]
     Indication: BACK DISORDER
     Dosage: 75 MG, 3X/DAY
     Route: 048
     Dates: start: 20100801
  2. LYRICA [Suspect]
     Indication: BACK PAIN
  3. AMLODIPINE/OLMESARTAN MEDOXOMIL [Concomitant]
     Indication: HYPERTENSION
     Dosage: UNK
  4. FUROSEMID [Concomitant]
  5. VYTORIN [Concomitant]
     Dosage: UNK
  6. LOVAZA [Concomitant]
     Dosage: UNK
  7. ACETYLSALICYLIC ACID [Concomitant]
     Dosage: 81 MG, UNK
  8. IRON [Concomitant]
     Dosage: UNK

REACTIONS (2)
  - BLOOD PRESSURE DECREASED [None]
  - OEDEMA PERIPHERAL [None]
